FAERS Safety Report 5318988-3 (Version None)
Quarter: 2007Q1

REPORT INFORMATION
  Report Type: 
  Country: None (occurrence: None)
  Receive Date: 20070202
  Receipt Date: 20060410
  Transmission Date: 20070707
  Serious: Yes (Hospitalization)
  Sender: FDA-Public Use
  Company Number: 251157

PATIENT
  Age: 8 Year
  Sex: Male
  Weight: 29.9 kg

DRUGS (2)
  1. NOVOLOG [Suspect]
     Indication: DIABETES MELLITUS INSULIN-DEPENDENT
     Dosage: 22 IU, QD, SUBCUTAN.-PUMP
     Route: 058
     Dates: start: 20010401
  2. MINIMED PARADIGM 712 INSULIN PUMP [Concomitant]

REACTIONS (1)
  - DIABETIC KETOACIDOSIS [None]
